FAERS Safety Report 9714579 (Version 3)
Quarter: 2013Q4

REPORT INFORMATION
  Report Type: Report from Study
  Country: US (occurrence: US)
  Receive Date: 20131126
  Receipt Date: 20131205
  Transmission Date: 20140711
  Serious: Yes (Hospitalization)
  Sender: FDA-Public Use
  Company Number: US-ABBVIE-13P-163-1172315-00

PATIENT
  Age: 69 Year
  Sex: Male
  Weight: 83.99 kg

DRUGS (27)
  1. ANDROGEL STICK PACK 1.25G [Suspect]
     Indication: ANDROGEN DEFICIENCY
  2. ANDROGEL STICK PACK 1.25G [Suspect]
     Indication: HYPOPITUITARISM
  3. ANDROGEL STICK PACK 1.25G [Suspect]
     Indication: HYPOGONADISM
  4. PREDNISONE [Concomitant]
     Indication: RHEUMATOID ARTHRITIS
  5. PLAQUENIL [Concomitant]
     Indication: RHEUMATOID ARTHRITIS
  6. ALLEGRA [Concomitant]
     Indication: SINUS DISORDER
  7. TOPROL [Concomitant]
     Indication: HYPERTENSION
  8. LANOXIN [Concomitant]
     Indication: ATRIAL FIBRILLATION
  9. COUMADIN [Concomitant]
     Indication: ATRIAL FIBRILLATION
  10. PROTONIX [Concomitant]
     Indication: GASTROOESOPHAGEAL REFLUX DISEASE
  11. VYTORIN [Concomitant]
     Indication: BLOOD CHOLESTEROL ABNORMAL
  12. BABY ASPIRIN [Concomitant]
     Indication: ATRIAL FIBRILLATION
  13. PERCOCET [Concomitant]
     Indication: RHEUMATOID ARTHRITIS
     Dates: start: 2010
  14. KLONOPIN [Concomitant]
     Indication: SLEEP DISORDER
  15. KLONOPIN [Concomitant]
     Indication: RESTLESS LEGS SYNDROME
  16. VITAMINS [Concomitant]
     Indication: VITAMIN SUPPLEMENTATION
  17. FOLIC ACID [Concomitant]
     Indication: PRODUCT USED FOR UNKNOWN INDICATION
  18. PROAIR [Concomitant]
     Indication: CHRONIC OBSTRUCTIVE PULMONARY DISEASE
  19. ADVAIR [Concomitant]
     Indication: PRODUCT USED FOR UNKNOWN INDICATION
  20. MAGNESIUM [Concomitant]
     Indication: MINERAL SUPPLEMENTATION
  21. VITAMIN B12 [Concomitant]
     Indication: VITAMIN SUPPLEMENTATION
  22. VALIUM [Concomitant]
     Indication: SLEEP DISORDER
  23. LEXAPRO [Concomitant]
     Indication: PRODUCT USED FOR UNKNOWN INDICATION
  24. VITAMIN D NOS [Concomitant]
     Indication: VITAMIN SUPPLEMENTATION
  25. MULTIVITAMIN [Concomitant]
     Indication: VITAMIN SUPPLEMENTATION
  26. LOMOTIL [Concomitant]
     Indication: DIARRHOEA
  27. SPIRIVA [Concomitant]
     Indication: CHRONIC OBSTRUCTIVE PULMONARY DISEASE

REACTIONS (4)
  - Candida pneumonia [Recovering/Resolving]
  - Pyrexia [Recovered/Resolved]
  - Chronic obstructive pulmonary disease [Recovered/Resolved]
  - Hiccups [Recovered/Resolved]
